FAERS Safety Report 5391876-2 (Version None)
Quarter: 2007Q3

REPORT INFORMATION
  Report Type: 
  Country: None (occurrence: None)
  Receive Date: 20070718
  Receipt Date: 20070702
  Transmission Date: 20080115
  Serious: Yes (Other)
  Sender: FDA-Public Use
  Company Number: 2007SP013836

PATIENT
  Age: 69 Year
  Sex: Male

DRUGS (10)
  1. CLARITIN [Suspect]
     Indication: LACRIMATION INCREASED
     Dosage: ;PO
     Route: 048
     Dates: start: 20070630, end: 20070701
  2. CLARITIN [Suspect]
     Indication: SNEEZING
     Dosage: ;PO
     Route: 048
     Dates: start: 20070630, end: 20070701
  3. CLARITIN [Suspect]
     Indication: THROAT IRRITATION
     Dosage: ;PO
     Route: 048
     Dates: start: 20070630, end: 20070701
  4. INSULIN [Suspect]
     Indication: DRUG USE FOR UNKNOWN INDICATION
  5. AVANDRYL [Suspect]
     Indication: DRUG USE FOR UNKNOWN INDICATION
     Dosage: ;PO
     Route: 048
  6. TARKA [Concomitant]
  7. HYDROCHLOROTHIAZIDE [Concomitant]
  8. LIPITOR [Concomitant]
  9. INDOMETHACIN [Concomitant]
  10. METOPROLOL SUCCINATE [Concomitant]

REACTIONS (1)
  - BLOOD GLUCOSE DECREASED [None]
